FAERS Safety Report 9183267 (Version 2)
Quarter: 2013Q2

REPORT INFORMATION
  Report Type: Report from Study
  Country: US (occurrence: US)
  Receive Date: 20130322
  Receipt Date: 20130405
  Transmission Date: 20140414
  Serious: Yes (Other)
  Sender: FDA-Public Use
  Company Number: US-ABBOTT-13P-163-1065037-00

PATIENT
  Age: 58 Year
  Sex: Male

DRUGS (8)
  1. HUMIRA [Suspect]
     Indication: COLITIS ULCERATIVE
     Route: 058
     Dates: start: 201209
  2. ADVAIR [Concomitant]
     Indication: PRODUCT USED FOR UNKNOWN INDICATION
  3. SINGULAIR [Concomitant]
     Indication: PRODUCT USED FOR UNKNOWN INDICATION
  4. MONTELUKAST [Concomitant]
     Indication: PRODUCT USED FOR UNKNOWN INDICATION
  5. VENTOLIN INHALERS [Concomitant]
     Indication: PRODUCT USED FOR UNKNOWN INDICATION
  6. VENTOLIN NEBULIZERS [Concomitant]
     Indication: PRODUCT USED FOR UNKNOWN INDICATION
  7. TRAZADONE [Concomitant]
     Indication: INSOMNIA
  8. CITALOPRAM [Concomitant]
     Indication: COLITIS ULCERATIVE

REACTIONS (4)
  - Respiratory failure [Recovered/Resolved]
  - Infection [Unknown]
  - Large intestine polyp [Unknown]
  - Dyspnoea [Unknown]
